FAERS Safety Report 26055348 (Version 1)
Quarter: 2025Q4

REPORT INFORMATION
  Report Type: Spontaneous
  Country: TW (occurrence: TW)
  Receive Date: 20251117
  Receipt Date: 20251117
  Transmission Date: 20260117
  Serious: Yes (Death, Other)
  Sender: SANDOZ
  Company Number: None

PATIENT
  Age: 7 Year
  Sex: Female
  Weight: 13.3 kg

DRUGS (12)
  1. DIPRIVAN [Suspect]
     Active Substance: PROPOFOL
     Indication: Induction of anaesthesia
     Dosage: 30+30MG
     Route: 042
     Dates: start: 20250819, end: 20250819
  2. DIPRIVAN [Suspect]
     Active Substance: PROPOFOL
     Indication: Spinal cord operation
     Dosage: 30+30MG
     Route: 042
     Dates: start: 20250717, end: 20250717
  3. DIPRIVAN [Suspect]
     Active Substance: PROPOFOL
     Indication: General anaesthesia
  4. CISATRACURIUM BESYLATE [Suspect]
     Active Substance: CISATRACURIUM BESYLATE
     Indication: Spinal cord operation
     Dosage: 2 MILLIGRAM
     Route: 042
     Dates: start: 20250717
  5. CISATRACURIUM BESYLATE [Suspect]
     Active Substance: CISATRACURIUM BESYLATE
     Indication: Induction of anaesthesia
     Dosage: 3 MICROGRAM, UNK
     Route: 042
     Dates: start: 20250819, end: 20250819
  6. CISATRACURIUM BESYLATE [Suspect]
     Active Substance: CISATRACURIUM BESYLATE
     Indication: General anaesthesia
  7. FENTANYL [Suspect]
     Active Substance: FENTANYL
     Indication: Induction of anaesthesia
     Dosage: UNK
     Route: 042
     Dates: start: 20250819, end: 20250819
  8. FENTANYL [Suspect]
     Active Substance: FENTANYL
     Indication: Spinal cord operation
     Dosage: UNK
     Route: 042
     Dates: start: 20250717, end: 20250717
  9. FENTANYL [Suspect]
     Active Substance: FENTANYL
     Indication: General anaesthesia
  10. SEVOFLURANE [Suspect]
     Active Substance: SEVOFLURANE
     Indication: Induction of anaesthesia
     Dosage: UNK
     Route: 042
     Dates: start: 20250819, end: 20250819
  11. SEVOFLURANE [Suspect]
     Active Substance: SEVOFLURANE
     Indication: Spinal cord operation
     Dosage: UNK
     Route: 042
     Dates: start: 20250717, end: 20250717
  12. SEVOFLURANE [Suspect]
     Active Substance: SEVOFLURANE
     Indication: General anaesthesia

REACTIONS (3)
  - Cardiac arrest [Fatal]
  - Acute respiratory failure [Fatal]
  - Hypoxia [Fatal]

NARRATIVE: CASE EVENT DATE: 20250819
